FAERS Safety Report 5975846-9 (Version None)
Quarter: 2008Q4

REPORT INFORMATION
  Report Type: 
  Country: None (occurrence: None)
  Receive Date: 20081202
  Receipt Date: 20081202
  Transmission Date: 20090506
  Serious: Yes (Hospitalization, Other)
  Sender: FDA-Public Use
  Company Number: A0752506A

PATIENT
  Age: 60 Year
  Sex: Female
  Weight: 72.6 kg

DRUGS (9)
  1. TOPOTECAN [Suspect]
     Indication: OVARIAN CANCER RECURRENT
     Dosage: 4MGM2 CYCLIC
     Route: 042
     Dates: start: 20080423
  2. BEVACIZUMAB [Suspect]
     Indication: OVARIAN CANCER RECURRENT
     Route: 042
     Dates: start: 20080423
  3. LEVOFLOXACIN [Concomitant]
     Dosage: 750MG PER DAY
     Route: 048
  4. FEXOFENADINE [Concomitant]
     Dosage: 30MG TWICE PER DAY
     Route: 048
  5. LORAZEPAM [Concomitant]
     Dosage: 1MG TWICE PER DAY
     Route: 048
  6. DEXAMETHASONE [Concomitant]
     Route: 048
  7. PRILOSEC [Concomitant]
     Dosage: 20MG TWICE PER DAY
  8. SUDAFED 12 HOUR [Concomitant]
  9. TYLENOL (CAPLET) [Concomitant]

REACTIONS (8)
  - ANAEMIA [None]
  - ASTHENIA [None]
  - COUGH [None]
  - DIZZINESS [None]
  - DYSPNOEA [None]
  - FATIGUE [None]
  - PLEURAL EFFUSION [None]
  - PNEUMONITIS [None]
